FAERS Safety Report 4721682-0 (Version None)
Quarter: 2005Q3

REPORT INFORMATION
  Report Type: 
  Country: None (occurrence: None)
  Receive Date: 20050721
  Receipt Date: 20050218
  Transmission Date: 20060218
  Serious: No
  Sender: FDA-Public Use
  Company Number: US-BRISTOL-MYERS SQUIBB COMPANY-12870689

PATIENT
  Age: 33 Year
  Sex: Female

DRUGS (5)
  1. COUMADIN [Suspect]
     Route: 048
  2. OXYCONTIN [Concomitant]
  3. OXYCODONE HCL [Concomitant]
  4. HYDROCODONE BITARTRATE [Concomitant]
  5. IRON SUPPLEMENT [Concomitant]

REACTIONS (1)
  - INTERNATIONAL NORMALISED RATIO DECREASED [None]
